FAERS Safety Report 15755598 (Version 1)
Quarter: 2018Q4

REPORT INFORMATION
  Report Type: Spontaneous
  Country: GB (occurrence: GB)
  Receive Date: 20181224
  Receipt Date: 20181224
  Transmission Date: 20190205
  Serious: Yes (Other)
  Sender: FDA-Public Use
  Company Number: GB-ACCORD-096732

PATIENT
  Age: 70 Year
  Sex: Female
  Weight: 73.47 kg

DRUGS (7)
  1. PRASUGREL. [Concomitant]
     Active Substance: PRASUGREL
  2. SALBUTAMOL [Concomitant]
     Active Substance: ALBUTEROL
  3. GLYCERYL TRINITRATE [Concomitant]
     Active Substance: NITROGLYCERIN
  4. CLENIL MODULITE [Concomitant]
     Active Substance: BECLOMETHASONE DIPROPIONATE
  5. ATORVASTATIN/ATORVASTATIN CALCIUM [Suspect]
     Active Substance: ATORVASTATIN CALCIUM
     Indication: PRODUCT USED FOR UNKNOWN INDICATION
     Route: 048
     Dates: start: 20170505, end: 20171103
  6. PERINDOPRIL [Concomitant]
     Active Substance: PERINDOPRIL
  7. BISOPROLOL [Concomitant]
     Active Substance: BISOPROLOL

REACTIONS (2)
  - Feeling hot [Unknown]
  - Myalgia [Recovering/Resolving]

NARRATIVE: CASE EVENT DATE: 20170608
